FAERS Safety Report 14476553 (Version 1)
Quarter: 2018Q1

REPORT INFORMATION
  Report Type: Spontaneous
  Country: US (occurrence: US)
  Receive Date: 20180201
  Receipt Date: 20180201
  Transmission Date: 20180509
  Serious: No
  Sender: FDA-Public Use
  Company Number: US-SA-2017SA225384

PATIENT
  Age: 67 Year
  Sex: Female
  Weight: 74.84 kg

DRUGS (20)
  1. METOPROLOL TARTRATE. [Concomitant]
     Active Substance: METOPROLOL TARTRATE
  2. TESTOSTERONE. [Concomitant]
     Active Substance: TESTOSTERONE
  3. ASPIRIN. [Concomitant]
     Active Substance: ASPIRIN
  4. FLUCONAZOLE. [Concomitant]
     Active Substance: FLUCONAZOLE
  5. ASPIRIN. [Concomitant]
     Active Substance: ASPIRIN
     Route: 065
  6. DIAZEPAM. [Concomitant]
     Active Substance: DIAZEPAM
  7. LEVOTHYROXINE. [Concomitant]
     Active Substance: LEVOTHYROXINE
  8. OMEGA-3 FATTY ACIDS [Concomitant]
     Active Substance: OMEGA-3 FATTY ACIDS
  9. ACYCLOVIR. [Concomitant]
     Active Substance: ACYCLOVIR
  10. ARMODAFINIL. [Concomitant]
     Active Substance: ARMODAFINIL
  11. PROGESTERONE. [Concomitant]
     Active Substance: PROGESTERONE
  12. ZOLPIDEM [Concomitant]
     Active Substance: ZOLPIDEM\ZOLPIDEM TARTRATE
  13. FLUTICASONE. [Concomitant]
     Active Substance: FLUTICASONE
  14. NITROGLYCERINE [Concomitant]
     Active Substance: NITROGLYCERIN
  15. OXYCODONE [Concomitant]
     Active Substance: OXYCODONE
  16. PRALUENT [Suspect]
     Active Substance: ALIROCUMAB
     Indication: HYPERLIPIDAEMIA
     Route: 058
     Dates: start: 20171001, end: 20171130
  17. ALIROCUMAB PREFILLED PEN [Suspect]
     Active Substance: ALIROCUMAB
     Indication: HYPERLIPIDAEMIA
     Dates: start: 20171001, end: 20171130
  18. ALBUTEROL. [Concomitant]
     Active Substance: ALBUTEROL
  19. SPIRONOLACTONE. [Concomitant]
     Active Substance: SPIRONOLACTONE
  20. LIOTHYRONINE [Concomitant]
     Active Substance: LIOTHYRONINE

REACTIONS (5)
  - Arthralgia [Not Recovered/Not Resolved]
  - Injection site mass [Unknown]
  - Flank pain [Not Recovered/Not Resolved]
  - Weight increased [Not Recovered/Not Resolved]
  - Back pain [Not Recovered/Not Resolved]

NARRATIVE: CASE EVENT DATE: 2017
